FAERS Safety Report 21083118 (Version 1)
Quarter: 2022Q3

REPORT INFORMATION
  Report Type: Spontaneous
  Country: US (occurrence: US)
  Receive Date: 20220714
  Receipt Date: 20220714
  Transmission Date: 20221027
  Serious: Yes (Other)
  Sender: FDA-Public Use
  Company Number: US-PFIZER INC-202200952599

PATIENT
  Age: 64 Year
  Sex: Female
  Weight: 88.45 kg

DRUGS (3)
  1. RAPAMUNE [Suspect]
     Active Substance: SIROLIMUS
     Indication: Heart transplant rejection
     Dosage: UNK
  2. PREDNISONE [Concomitant]
     Active Substance: PREDNISONE
     Dosage: UNK
  3. TAFAMIDIS [Concomitant]
     Active Substance: TAFAMIDIS
     Dosage: UNK

REACTIONS (4)
  - Knee arthroplasty [Recovering/Resolving]
  - Pruritus [Recovered/Resolved]
  - Memory impairment [Unknown]
  - Off label use [Unknown]

NARRATIVE: CASE EVENT DATE: 20220606
